FAERS Safety Report 9219941 (Version 1)
Quarter: 2013Q2

REPORT INFORMATION
  Report Type: Spontaneous
  Country: FR (occurrence: FR)
  Receive Date: 20130409
  Receipt Date: 20130409
  Transmission Date: 20140414
  Serious: Yes (Hospitalization)
  Sender: FDA-Public Use
  Company Number: FR-ASTRAZENECA-2013SE21980

PATIENT
  Age: 4181 Week
  Sex: Female

DRUGS (16)
  1. HYTACAND [Suspect]
     Indication: ATRIAL FIBRILLATION
     Dosage: 8MG/12.5MG PER DOSE, 1 DF PER DAY
     Route: 048
     Dates: start: 20121127, end: 20130104
  2. DIFFU K [Suspect]
     Route: 048
     Dates: start: 20121123, end: 20130104
  3. LASILIX [Suspect]
     Indication: ATRIAL FIBRILLATION
     Route: 048
     Dates: start: 20121123, end: 20130104
  4. ALDACTONE [Suspect]
     Indication: ATRIAL FIBRILLATION
     Route: 048
     Dates: start: 20121127, end: 20130104
  5. HEMIGOXINE NATIVELLE [Suspect]
     Indication: ATRIAL FIBRILLATION
     Route: 048
     Dates: start: 20121127, end: 20130104
  6. CORDARONE [Suspect]
     Indication: ATRIAL FIBRILLATION
     Route: 048
     Dates: start: 20121123, end: 20130104
  7. CORDARONE [Suspect]
     Indication: ATRIAL FIBRILLATION
  8. PREVISCAN [Concomitant]
     Route: 048
  9. SINGULAIR [Concomitant]
     Route: 048
  10. PANTOPRAZOLE [Concomitant]
     Route: 048
  11. PANTOPRAZOLE [Concomitant]
     Route: 048
  12. XYZALL [Concomitant]
     Route: 048
     Dates: start: 20121127, end: 20130104
  13. ALPHAGAN [Concomitant]
     Dosage: LONG LASTING TREATMENT
     Route: 047
  14. ATROVENT [Concomitant]
     Dosage: LONG LASTING TREATMENT
     Route: 055
  15. BRICANYL [Concomitant]
     Dosage: LONG LASTING TREATMENT
     Route: 055
  16. PULMICORT [Concomitant]
     Dosage: LONG LASTING TREATMENT
     Route: 055

REACTIONS (6)
  - Overdose [Recovered/Resolved]
  - Bradycardia [Recovered/Resolved]
  - General physical health deterioration [Unknown]
  - Dehydration [Unknown]
  - Renal failure acute [Recovered/Resolved]
  - Hyperkalaemia [Recovered/Resolved]
